FAERS Safety Report 25610541 (Version 1)
Quarter: 2025Q3

REPORT INFORMATION
  Report Type: Report from Study
  Country: US (occurrence: US)
  Receive Date: 20250728
  Receipt Date: 20250728
  Transmission Date: 20251021
  Serious: Yes (Hospitalization)
  Sender: SUNOVION
  Company Number: US-SMPA-2025SPA007918

PATIENT

DRUGS (2)
  1. ORGOVYX [Suspect]
     Active Substance: RELUGOLIX
     Indication: Prostate cancer
     Route: 048
     Dates: start: 20220218
  2. ORGOVYX [Suspect]
     Active Substance: RELUGOLIX
     Route: 048
     Dates: start: 20220219

REACTIONS (1)
  - Toe operation [Unknown]
